FAERS Safety Report 7331803-1 (Version None)
Quarter: 2011Q1

REPORT INFORMATION
  Report Type: 
  Country: None (occurrence: None)
  Receive Date: 20110304
  Receipt Date: 20090901
  Transmission Date: 20110831
  Serious: Yes (Hospitalization, Other)
  Sender: FDA-Public Use
  Company Number: US-PFIZER INC-2008085758

PATIENT
  Sex: Female

DRUGS (8)
  1. TALWIN NX [Suspect]
     Indication: PAIN
     Dosage: AS NEEDED
  2. MULTI-VITAMINS [Concomitant]
     Dosage: 500 MG, UNK
     Route: 048
  3. LISINOPRIL [Concomitant]
     Dosage: 2.5 MG, UNK
     Route: 048
  4. DILANTIN [Suspect]
     Route: 048
     Dates: end: 20070710
  5. VITAMIN B1 TAB [Concomitant]
     Dosage: DAILY
     Route: 048
  6. DECADRON [Concomitant]
  7. NEURONTIN [Concomitant]
     Dosage: AT BEDTIME
     Route: 048
  8. PEPCID [Concomitant]
     Route: 048

REACTIONS (1)
  - STEVENS-JOHNSON SYNDROME [None]
